FAERS Safety Report 4795811-7 (Version None)
Quarter: 2005Q3

REPORT INFORMATION
  Report Type: 
  Country: None (occurrence: None)
  Receive Date: 20050916
  Receipt Date: 20040803
  Transmission Date: 20060218
  Serious: Yes (Other)
  Sender: FDA-Public Use
  Company Number: US-JNJFOC-20040303818

PATIENT
  Age: 37 Year
  Sex: Female
  Weight: 122.9248 kg

DRUGS (13)
  1. TOPAMAX [Suspect]
     Indication: NEUROPATHY
     Dosage: 100 MG, 1 IN 1 DAY, ORAL; 50 MG, 1 IN 1 DAY, ORAL; 25 MG, 1 IN 1 DAY, ORAL
     Route: 048
     Dates: start: 20040101, end: 20040101
  2. TOPAMAX [Suspect]
     Indication: PAIN
     Dosage: 100 MG, 1 IN 1 DAY, ORAL; 50 MG, 1 IN 1 DAY, ORAL; 25 MG, 1 IN 1 DAY, ORAL
     Route: 048
     Dates: start: 20040101, end: 20040101
  3. TOPAMAX [Suspect]
     Indication: WEIGHT LOSS DIET
     Dosage: 100 MG, 1 IN 1 DAY, ORAL; 50 MG, 1 IN 1 DAY, ORAL; 25 MG, 1 IN 1 DAY, ORAL
     Route: 048
     Dates: start: 20040101, end: 20040101
  4. TOPAMAX [Suspect]
     Indication: NEUROPATHY
     Dosage: 100 MG, 1 IN 1 DAY, ORAL; 50 MG, 1 IN 1 DAY, ORAL; 25 MG, 1 IN 1 DAY, ORAL
     Route: 048
     Dates: start: 20040101, end: 20040315
  5. TOPAMAX [Suspect]
     Indication: PAIN
     Dosage: 100 MG, 1 IN 1 DAY, ORAL; 50 MG, 1 IN 1 DAY, ORAL; 25 MG, 1 IN 1 DAY, ORAL
     Route: 048
     Dates: start: 20040101, end: 20040315
  6. TOPAMAX [Suspect]
     Indication: WEIGHT LOSS DIET
     Dosage: 100 MG, 1 IN 1 DAY, ORAL; 50 MG, 1 IN 1 DAY, ORAL; 25 MG, 1 IN 1 DAY, ORAL
     Route: 048
     Dates: start: 20040101, end: 20040315
  7. TOPAMAX [Suspect]
     Indication: NEUROPATHY
     Dosage: 100 MG, 1 IN 1 DAY, ORAL; 50 MG, 1 IN 1 DAY, ORAL; 25 MG, 1 IN 1 DAY, ORAL
     Route: 048
     Dates: start: 20040101
  8. TOPAMAX [Suspect]
     Indication: PAIN
     Dosage: 100 MG, 1 IN 1 DAY, ORAL; 50 MG, 1 IN 1 DAY, ORAL; 25 MG, 1 IN 1 DAY, ORAL
     Route: 048
     Dates: start: 20040101
  9. TOPAMAX [Suspect]
     Indication: WEIGHT LOSS DIET
     Dosage: 100 MG, 1 IN 1 DAY, ORAL; 50 MG, 1 IN 1 DAY, ORAL; 25 MG, 1 IN 1 DAY, ORAL
     Route: 048
     Dates: start: 20040101
  10. METFORMIN (METFORMIN) [Suspect]
     Indication: INSULIN RESISTANCE
     Dosage: 850 MG, 2 IN 1 DAY, ORAL
     Route: 048
     Dates: start: 20030501, end: 20040301
  11. PAXIL [Concomitant]
  12. LORCET-HD [Concomitant]
  13. FLEXERIL [Concomitant]

REACTIONS (12)
  - ANOREXIA [None]
  - CARBON DIOXIDE DECREASED [None]
  - DRUG INTERACTION [None]
  - FATIGUE [None]
  - FEELING ABNORMAL [None]
  - HEADACHE [None]
  - HEART RATE INCREASED [None]
  - HYPERTENSION [None]
  - PALPITATIONS [None]
  - PARAESTHESIA [None]
  - THIRST [None]
  - TREMOR [None]
